FAERS Safety Report 9163676 (Version 1)
Quarter: 2013Q1

REPORT INFORMATION
  Report Type: Spontaneous
  Country: US (occurrence: US)
  Receive Date: 20130314
  Receipt Date: 20130314
  Transmission Date: 20140127
  Serious: Yes (Hospitalization, Other)
  Sender: FDA-Public Use
  Company Number: US-ASTRAZENECA-2013SE16418

PATIENT
  Age: 644 Month
  Sex: Female
  Weight: 75.8 kg

DRUGS (9)
  1. QUETIAPINE FUMURATE [Suspect]
     Indication: SLEEP DISORDER
     Route: 048
     Dates: start: 201203, end: 201302
  2. PROZAC [Concomitant]
     Dates: start: 20130225
  3. ABILIFY [Concomitant]
     Dates: start: 20130225
  4. PERCOCET [Concomitant]
     Dates: start: 20130211
  5. VALIUM [Concomitant]
     Dates: start: 20130211
  6. TOPRAMAX [Concomitant]
     Indication: CONVULSION
     Dates: start: 201211
  7. TOPRAMAX [Concomitant]
     Indication: HEADACHE
     Dates: start: 201211
  8. DOPAMINE [Concomitant]
     Dates: start: 20130225
  9. ESTROGEN [Concomitant]

REACTIONS (15)
  - Depression [Recovering/Resolving]
  - Convulsion [Unknown]
  - Diplopia [Not Recovered/Not Resolved]
  - Hallucination [Recovered/Resolved]
  - Nail discolouration [Recovered/Resolved]
  - Urine analysis abnormal [Recovered/Resolved]
  - Withdrawal syndrome [Recovered/Resolved]
  - Headache [Unknown]
  - Vision blurred [Not Recovered/Not Resolved]
  - Abnormal dreams [Recovered/Resolved]
  - Constipation [Recovered/Resolved]
  - Restlessness [Recovered/Resolved]
  - Weight increased [Recovering/Resolving]
  - Drug dose omission [Unknown]
  - Off label use [Recovered/Resolved]
